FAERS Safety Report 18933136 (Version 1)
Quarter: 2021Q1

REPORT INFORMATION
  Report Type: Spontaneous
  Country: US (occurrence: US)
  Receive Date: 20210223
  Receipt Date: 20210223
  Transmission Date: 20210420
  Serious: Yes (Other)
  Sender: FDA-Public Use
  Company Number: None

PATIENT
  Sex: Female

DRUGS (1)
  1. HUMIRA [Suspect]
     Active Substance: ADALIMUMAB
     Indication: RHEUMATOID ARTHRITIS
     Dosage: ON HOLD
     Route: 058
     Dates: start: 20201022

REACTIONS (10)
  - Abdominal pain upper [None]
  - Epistaxis [None]
  - Arthralgia [None]
  - Breast pain [None]
  - Dyspnoea [None]
  - Nausea [None]
  - Oropharyngeal pain [None]
  - Chest pain [None]
  - Oral candidiasis [None]
  - Neck pain [None]
